FAERS Safety Report 8476660 (Version 9)
Quarter: 2013Q2

REPORT INFORMATION
  Report Type: Spontaneous
  Country: US (occurrence: US)
  Receive Date: 20120326
  Receipt Date: 20130523
  Transmission Date: 20140414
  Serious: Yes (Hospitalization, Other)
  Sender: FDA-Public Use
  Company Number: US-ROCHE-1016847

PATIENT
  Age: 23 Year
  Sex: Female
  Weight: 59.02 kg

DRUGS (7)
  1. ACCUTANE [Suspect]
     Indication: ACNE
     Route: 065
     Dates: start: 1993, end: 1994
  2. ACCUTANE [Suspect]
     Route: 065
     Dates: start: 2003, end: 2004
  3. RITALIN [Concomitant]
  4. PROZAC [Concomitant]
  5. PERMAX [Concomitant]
  6. KLONOPIN [Concomitant]
  7. ALBUTEROL [Concomitant]

REACTIONS (20)
  - Depression [Unknown]
  - Arthralgia [Unknown]
  - Bipolar disorder [Unknown]
  - Bronchitis [Unknown]
  - Asthma [Unknown]
  - Colitis ulcerative [Unknown]
  - Crohn^s disease [Unknown]
  - Inflammatory bowel disease [Unknown]
  - Suicidal ideation [Unknown]
  - Fibromyalgia [Unknown]
  - Paraesthesia [Unknown]
  - Convulsion [Unknown]
  - Psychotic disorder [Unknown]
  - Restless legs syndrome [Unknown]
  - Arthritis [Unknown]
  - Headache [Unknown]
  - Anaemia [Unknown]
  - Irritable bowel syndrome [Unknown]
  - Sacroiliitis [Unknown]
  - Rhinitis [Unknown]
